FAERS Safety Report 10652714 (Version 1)
Quarter: 2014Q4

REPORT INFORMATION
  Report Type: Spontaneous
  Country: US (occurrence: US)
  Receive Date: 20141215
  Receipt Date: 20141215
  Transmission Date: 20150529
  Serious: No
  Sender: FDA-Public Use
  Company Number: US-ELI_LILLY_AND_COMPANY-US201412004494

PATIENT
  Age: 73 Year
  Sex: Female

DRUGS (3)
  1. LANTUS [Concomitant]
     Active Substance: INSULIN GLARGINE
  2. HUMALOG [Suspect]
     Active Substance: INSULIN LISPRO
     Indication: TYPE 2 DIABETES MELLITUS
     Dosage: 5 U, EACH MORNING
     Route: 065
     Dates: start: 20141017
  3. HUMALOG [Suspect]
     Active Substance: INSULIN LISPRO
     Dosage: 10 U, BID
     Route: 065
     Dates: start: 20141017

REACTIONS (6)
  - Cough [Unknown]
  - Headache [Unknown]
  - Medication error [Unknown]
  - Blood glucose increased [Unknown]
  - Upper respiratory tract infection [Unknown]
  - Myalgia [Unknown]

NARRATIVE: CASE EVENT DATE: 20141114
